FAERS Safety Report 15544583 (Version 5)
Quarter: 2019Q1

REPORT INFORMATION
  Report Type: Report from Study
  Country: US (occurrence: US)
  Receive Date: 20181024
  Receipt Date: 20190316
  Transmission Date: 20190417
  Serious: Yes (Other)
  Sender: FDA-Public Use
  Company Number: PHEH2018US043630

PATIENT
  Age: 42 Year
  Sex: Female

DRUGS (3)
  1. GILENYA [Suspect]
     Active Substance: FINGOLIMOD HYDROCHLORIDE
     Dosage: 0.5 MG, QD
     Route: 048
     Dates: start: 20180703
  2. GILENYA [Suspect]
     Active Substance: FINGOLIMOD HYDROCHLORIDE
     Dosage: UNK
     Route: 065
     Dates: start: 20180715
  3. GILENYA [Suspect]
     Active Substance: FINGOLIMOD HYDROCHLORIDE
     Indication: MULTIPLE SCLEROSIS
     Dosage: UNK MG, QD
     Route: 065
     Dates: start: 20180612

REACTIONS (10)
  - Dizziness [Recovering/Resolving]
  - Sensory disturbance [Unknown]
  - Pain in extremity [Unknown]
  - Dysarthria [Unknown]
  - Band sensation [Unknown]
  - Deafness [Unknown]
  - Muscle spasms [Unknown]
  - Multiple sclerosis relapse [Unknown]
  - Tunnel vision [Recovered/Resolved]
  - Vision blurred [Unknown]

NARRATIVE: CASE EVENT DATE: 20181010
